FAERS Safety Report 7568962-1 (Version None)
Quarter: 2011Q2

REPORT INFORMATION
  Report Type: 
  Country: None (occurrence: None)
  Receive Date: 20110623
  Receipt Date: 20110615
  Transmission Date: 20111010
  Serious: Yes (Hospitalization)
  Sender: FDA-Public Use
  Company Number: NL-GENZYME-CLOF-1001394

PATIENT
  Sex: Male
  Weight: 120 kg

DRUGS (3)
  1. EVOLTRA [Suspect]
     Indication: HAEMATOLOGICAL MALIGNANCY
     Dosage: 25 MG, QD ON DAYS 2, 4, 5, 8 AND 10
     Route: 042
     Dates: start: 20101022, end: 20101030
  2. IDARUBICIN HCL [Suspect]
     Indication: HAEMATOLOGICAL MALIGNANCY
     Dosage: 25 MG, QD ON DAYS 1, 3 AND 5
     Route: 042
     Dates: start: 20101021, end: 20101025
  3. CYTARABINE [Suspect]
     Indication: HAEMATOLOGICAL MALIGNANCY
     Dosage: 250 MG, QD, DAYS 1 THROUGH 10
     Route: 042
     Dates: start: 20101021, end: 20101030

REACTIONS (1)
  - PYREXIA [None]
